FAERS Safety Report 9775958 (Version 1)
Quarter: 2013Q4

REPORT INFORMATION
  Report Type: Spontaneous
  Country: CZ (occurrence: CZ)
  Receive Date: 20131220
  Receipt Date: 20131220
  Transmission Date: 20140711
  Serious: Yes (Life-Threatening, Hospitalization, Other)
  Sender: FDA-Public Use
  Company Number: CZ-TEVA-450927ISR

PATIENT
  Age: 47 Year
  Sex: 0
  Weight: 73 kg

DRUGS (1)
  1. OXALIPLATIN [Suspect]
     Indication: NEOPLASM MALIGNANT
     Dates: start: 20131129, end: 20131129

REACTIONS (4)
  - Anaphylactic reaction [Recovered/Resolved]
  - Hypotension [Recovered/Resolved]
  - Rash [Recovered/Resolved]
  - Mydriasis [Recovered/Resolved]
